FAERS Safety Report 7178278-3 (Version None)
Quarter: 2010Q4

REPORT INFORMATION
  Report Type: 
  Country: None (occurrence: None)
  Receive Date: 20101220
  Receipt Date: 20101215
  Transmission Date: 20110411
  Serious: Yes (Hospitalization, Disabling)
  Sender: FDA-Public Use
  Company Number: GB-PFIZER INC-2010173404

PATIENT
  Sex: Female

DRUGS (10)
  1. AROMASIN [Suspect]
     Indication: BREAST CANCER
     Dosage: 25 MG, 1X/DAY
     Route: 048
     Dates: start: 20100916
  2. CARBAMAZEPINE [Concomitant]
  3. GABAPENTIN [Concomitant]
  4. SIMVASTATIN [Concomitant]
  5. AMITRIPTYLINE [Concomitant]
  6. ANASTROZOLE [Concomitant]
     Indication: BREAST CANCER
     Dosage: UNK
     Route: 048
     Dates: start: 20100916
  7. ACETYLSALICYLIC ACID [Concomitant]
  8. FASLODEX [Concomitant]
     Indication: BREAST CANCER
     Dosage: UNK
     Route: 048
     Dates: start: 20100916
  9. OMEPRAZOLE [Concomitant]
  10. SOLIFENACIN [Concomitant]

REACTIONS (2)
  - COLITIS ISCHAEMIC [None]
  - DIARRHOEA [None]
